FAERS Safety Report 7654961 (Version 5)
Quarter: 2013Q2

REPORT INFORMATION
  Report Type: Report from Study
  Country: JP (occurrence: JP)
  Receive Date: 20101103
  Receipt Date: 20130408
  Transmission Date: 20140414
  Serious: Yes (Life-Threatening, Hospitalization)
  Sender: FDA-Public Use
  Company Number: JP-CELGENEUS-087-21880-10091212

PATIENT
  Age: 75 Year
  Sex: Female

DRUGS (16)
  1. REVLIMID [Suspect]
     Indication: PLASMA CELL MYELOMA
     Dosage: 20 MILLIGRAM
     Route: 048
     Dates: start: 20100806, end: 20100810
  2. REVLIMID [Suspect]
     Dosage: 10 MILLIGRAM
     Route: 048
     Dates: start: 20100812, end: 20100826
  3. REVLIMID [Suspect]
     Dosage: 15 MILLIGRAM
     Route: 048
     Dates: start: 20100903, end: 20100921
  4. REVLIMID [Suspect]
     Dosage: 10 MILLIGRAM
     Route: 048
     Dates: start: 20101013, end: 20101017
  5. REVLIMID [Suspect]
     Dosage: 5 MILLIGRAM
     Route: 048
     Dates: start: 20101106, end: 20101126
  6. REVLIMID [Suspect]
     Dosage: 5 MILLIGRAM
     Route: 048
     Dates: start: 20101204, end: 20101214
  7. LENADEX [Suspect]
     Indication: PLASMA CELL MYELOMA
     Dosage: 12 MILLIGRAM
     Route: 048
     Dates: start: 20100806, end: 20100809
  8. LENADEX [Suspect]
     Dosage: 12 MILLIGRAM
     Route: 048
     Dates: start: 20100814, end: 20100816
  9. LENADEX [Suspect]
     Dosage: 12 MILLIGRAM
     Route: 048
     Dates: start: 20100822, end: 20100824
  10. LENADEX [Suspect]
     Dosage: 12 MILLIGRAM
     Route: 048
     Dates: start: 20100903, end: 20100921
  11. TAKEPRON [Concomitant]
     Indication: PLASMA CELL MYELOMA
     Dosage: 80 MILLIGRAM
     Route: 048
     Dates: start: 20100806
  12. TAKEPRON [Concomitant]
     Dosage: 30 MILLIGRAM
     Route: 048
     Dates: start: 20101106
  13. MUCOSTA [Concomitant]
     Indication: PLASMA CELL MYELOMA
     Dosage: 300 MILLIGRAM
     Route: 048
     Dates: start: 20100806
  14. VALTREX [Concomitant]
     Indication: PROPHYLAXIS
     Dosage: 500 MILLIGRAM
     Route: 048
     Dates: start: 20100806, end: 20100826
  15. VALTREX [Concomitant]
     Dosage: 500 MILLIGRAM
     Route: 048
     Dates: start: 20101106
  16. ZOMETA [Concomitant]
     Indication: PLASMA CELL MYELOMA
     Dosage: 4 MILLIGRAM
     Route: 041
     Dates: start: 20100908, end: 20100908

REACTIONS (7)
  - Cerebral infarction [Recovering/Resolving]
  - Haematotympanum [Recovering/Resolving]
  - Eosinophilia [Recovered/Resolved]
  - Rash generalised [Recovered/Resolved]
  - Otitis media [Recovering/Resolving]
  - Liver disorder [Recovering/Resolving]
  - Eosinophil count increased [Recovered/Resolved]
